FAERS Safety Report 10010713 (Version 2)
Quarter: 2014Q1

REPORT INFORMATION
  Report Type: Spontaneous
  Country: US (occurrence: US)
  Receive Date: 20140314
  Receipt Date: 20140314
  Transmission Date: 20141002
  Serious: No
  Sender: FDA-Public Use
  Company Number: US-DRREDDYS-USA/USA/13/0028479

PATIENT
  Age: 75 Year
  Sex: Male
  Weight: 77.18 kg

DRUGS (1)
  1. CETIRIZINE 10 MG [Suspect]
     Indication: SINUSITIS
     Route: 048
     Dates: start: 20130306, end: 20130306

REACTIONS (2)
  - Somnambulism [Recovered/Resolved]
  - Nightmare [Recovered/Resolved]
